FAERS Safety Report 9252797 (Version 1)
Quarter: 2013Q2

REPORT INFORMATION
  Report Type: Spontaneous
  Country: US (occurrence: US)
  Receive Date: 20130424
  Receipt Date: 20130424
  Transmission Date: 20140414
  Serious: No
  Sender: FDA-Public Use
  Company Number: US-BAUSCH-BL-2012-001557

PATIENT
  Age: 35 Year
  Sex: Female

DRUGS (5)
  1. LOTEMAX (LOTEPREDNOL ETABONATE OPHTHALMIC SUSPENSION 0.5%) [Suspect]
     Indication: CORNEAL DISORDER
     Dosage: 1 DROP; 4 TIMES A DAY; LEFT EYE
     Route: 047
     Dates: start: 201201, end: 201204
  2. LOTEMAX (LOTEPREDNOL ETABONATE OPHTHALMIC SUSPENSION 0.5%) [Suspect]
     Dosage: 1 DROP; 3 TIMES A DAY; LEFT EYE
     Route: 047
     Dates: start: 201204, end: 201204
  3. LOTEMAX (LOTEPREDNOL ETABONATE OPHTHALMIC SUSPENSION 0.5%) [Suspect]
     Dosage: 1 DROP; TWICE A DAY; LEFT EYE
     Route: 047
     Dates: start: 201204, end: 201204
  4. LOTEMAX (LOTEPREDNOL ETABONATE OPHTHALMIC SUSPENSION 0.5%) [Suspect]
     Dosage: 1 DROP; DAILY; LEFT EYE
     Route: 047
     Dates: start: 201204, end: 201204
  5. ETHINYLESTRADIOL [Concomitant]
     Indication: CONTRACEPTION
     Dates: start: 2007

REACTIONS (1)
  - Alopecia [Not Recovered/Not Resolved]
